FAERS Safety Report 9270587 (Version 1)
Quarter: 2013Q2

REPORT INFORMATION
  Report Type: Other
  Country: US (occurrence: US)
  Receive Date: 20130503
  Receipt Date: 20130503
  Transmission Date: 20140414
  Serious: Yes (Other)
  Sender: FDA-Public Use
  Company Number: US-BRISTOL-MYERS SQUIBB COMPANY-18864157

PATIENT
  Sex: Female

DRUGS (4)
  1. CARBOPLATIN [Suspect]
     Indication: OVARIAN CANCER
  2. PACLITAXEL [Suspect]
     Indication: OVARIAN CANCER
  3. DOXORUBICIN [Suspect]
     Indication: OVARIAN CANCER
     Dosage: CUMULATIVE DOSE:460MG/M2
  4. BEVACIZUMAB [Suspect]
     Indication: OVARIAN CANCER

REACTIONS (1)
  - Renal failure chronic [Unknown]
